FAERS Safety Report 4837365-2 (Version None)
Quarter: 2005Q4

REPORT INFORMATION
  Report Type: 
  Country: None (occurrence: None)
  Receive Date: 20051122
  Receipt Date: 20051109
  Transmission Date: 20060501
  Serious: Yes (Other)
  Sender: FDA-Public Use
  Company Number: 2005152224

PATIENT
  Sex: Female

DRUGS (1)
  1. XALATAN [Suspect]
     Indication: GLAUCOMA
     Dosage: 1 DROP (DAILY), OPHTHALMIC
     Route: 047
     Dates: start: 20010101

REACTIONS (4)
  - EYE IRRITATION [None]
  - EYE SWELLING [None]
  - OCULAR HYPERAEMIA [None]
  - VISUAL DISTURBANCE [None]
